FAERS Safety Report 5322877-8 (Version None)
Quarter: 2007Q2

REPORT INFORMATION
  Report Type: 
  Country: None (occurrence: None)
  Receive Date: 20070511
  Receipt Date: 20070502
  Transmission Date: 20071010
  Serious: Yes (Other)
  Sender: FDA-Public Use
  Company Number: FR-PFIZER INC-2007036090

PATIENT
  Sex: Female

DRUGS (3)
  1. XALATAN [Suspect]
     Indication: OCULAR HYPERTENSION
  2. SECTRAL [Concomitant]
  3. IRBESARTAN [Concomitant]

REACTIONS (2)
  - BLOOD PRESSURE INCREASED [None]
  - MALAISE [None]
